FAERS Safety Report 14296785 (Version 1)
Quarter: 2017Q4

REPORT INFORMATION
  Report Type: Spontaneous
  Country: LK (occurrence: LK)
  Receive Date: 20171218
  Receipt Date: 20171218
  Transmission Date: 20180321
  Serious: Yes (Death, Other)
  Sender: FDA-Public Use
  Company Number: LK-TELIGENT, INC-IGIL20170596

PATIENT
  Age: 52 Year
  Sex: Male

DRUGS (1)
  1. CEFTAZIDIME. [Suspect]
     Active Substance: CEFTAZIDIME
     Indication: PRODUCT USED FOR UNKNOWN INDICATION
     Dosage: UNKNOWN
     Route: 042

REACTIONS (15)
  - Bronchial secretion retention [Unknown]
  - Laryngeal oedema [Unknown]
  - Eosinophilia [Unknown]
  - Splenomegaly [Unknown]
  - Arteriosclerosis coronary artery [Unknown]
  - Loss of consciousness [Unknown]
  - Heart injury [Unknown]
  - Kounis syndrome [Fatal]
  - Pneumothorax [Unknown]
  - Hypotension [Unknown]
  - Dyspnoea [Unknown]
  - Chest pain [Unknown]
  - Gastritis erosive [Unknown]
  - Cardiac arrest [Fatal]
  - Pulse abnormal [Unknown]
